FAERS Safety Report 24692735 (Version 1)
Quarter: 2024Q4

REPORT INFORMATION
  Report Type: Report from Study
  Country: PE (occurrence: PE)
  Receive Date: 20241203
  Receipt Date: 20241203
  Transmission Date: 20250115
  Serious: Yes (Other)
  Sender: ALEXION PHARMACEUTICALS
  Company Number: PE-AstraZeneca-CH-00755166A

PATIENT

DRUGS (4)
  1. OLAPARIB [Suspect]
     Active Substance: OLAPARIB
     Indication: Ovarian cancer
     Dosage: 600 UNK
  2. OLAPARIB [Suspect]
     Active Substance: OLAPARIB
     Dosage: 600 UNK
  3. OLAPARIB [Suspect]
     Active Substance: OLAPARIB
     Dosage: 600 UNK
  4. OLAPARIB [Suspect]
     Active Substance: OLAPARIB
     Dosage: 600 UNK

REACTIONS (5)
  - Thrombosis [Not Recovered/Not Resolved]
  - Nausea [Not Recovered/Not Resolved]
  - Headache [Not Recovered/Not Resolved]
  - Fatigue [Not Recovered/Not Resolved]
  - Hypoaesthesia [Not Recovered/Not Resolved]
